FAERS Safety Report 5747865-9 (Version None)
Quarter: 2008Q2

REPORT INFORMATION
  Report Type: 
  Country: None (occurrence: None)
  Receive Date: 20080523
  Receipt Date: 20080516
  Transmission Date: 20081010
  Serious: Yes (Hospitalization)
  Sender: FDA-Public Use
  Company Number: FR-MERCK-0805FRA00042

PATIENT
  Age: 60 Year
  Sex: Female

DRUGS (4)
  1. NOROXIN [Suspect]
     Indication: URINARY TRACT INFECTION
     Route: 048
     Dates: start: 20080329, end: 20080401
  2. PREDNISONE [Concomitant]
     Indication: PEMPHIGUS
     Route: 048
     Dates: start: 20060601
  3. PSEUDOEPHEDRINE HYDROCHLORIDE AND TRIPROLIDINE HYDROCHLORIDE [Concomitant]
     Route: 047
  4. CROMOLYN SODIUM [Concomitant]
     Route: 047

REACTIONS (1)
  - PEMPHIGUS [None]
